FAERS Safety Report 8921495 (Version 2)
Quarter: 2012Q4

REPORT INFORMATION
  Report Type: Report from Study
  Country: BE (occurrence: BE)
  Receive Date: 20121121
  Receipt Date: 20121130
  Transmission Date: 20130627
  Serious: Yes (Hospitalization)
  Sender: FDA-Public Use
  Company Number: BE-ABBOTT-12P-013-1007871-00

PATIENT
  Age: 59 Year
  Sex: Male

DRUGS (5)
  1. HUMIRA [Suspect]
     Indication: CROHN^S DISEASE
     Dosage: Baseline
     Route: 058
     Dates: start: 20080630, end: 20080630
  2. HUMIRA [Suspect]
     Dosage: Week 2
     Route: 058
  3. HUMIRA [Suspect]
     Route: 058
     Dates: end: 20110316
  4. HUMIRA [Suspect]
     Route: 058
     Dates: start: 20111006
  5. IMODIUM [Concomitant]
     Indication: DIARRHOEA
     Dates: start: 20060101

REACTIONS (1)
  - Faecal incontinence [Recovered/Resolved]
